FAERS Safety Report 17483858 (Version 2)
Quarter: 2020Q2

REPORT INFORMATION
  Report Type: Spontaneous
  Country: US (occurrence: US)
  Receive Date: 20200302
  Receipt Date: 20200629
  Transmission Date: 20200713
  Serious: Yes (Hospitalization)
  Sender: FDA-Public Use
  Company Number: US-PROCTER_AND_GAMBLE-GS20022068

PATIENT
  Age: 43 Year
  Sex: Male
  Weight: 77.1 kg

DRUGS (2)
  1. VICKS NYQUIL SEVERE COLD AND FLU [Suspect]
     Active Substance: ACETAMINOPHEN\DEXTROMETHORPHAN HYDROBROMIDE\DOXYLAMINE SUCCINATE\PHENYLEPHRINE
     Indication: COUGH
     Dosage: TOOK IT A FEW TIMES OVER A WEEK PERIOD, 1 TIME DAILY
     Route: 048
     Dates: start: 20180129, end: 20180201
  2. THERAFLU                           /00446801/ [Suspect]
     Active Substance: ACETAMINOPHEN\CHLORPHENIRAMINE MALEATE\PSEUDOEPHEDRINE HYDROCHLORIDE

REACTIONS (73)
  - Kidney infection [Recovered/Resolved]
  - Anorectal disorder [Recovered/Resolved]
  - Abdominal pain [Recovered/Resolved]
  - Haematocrit decreased [Not Recovered/Not Resolved]
  - White blood cell count increased [Recovered/Resolved]
  - Blood glucose increased [Recovering/Resolving]
  - Abdominal rigidity [Recovered/Resolved]
  - Blood urine present [Recovered/Resolved]
  - Haematuria [Recovered/Resolved]
  - Adrenal cyst [Recovered/Resolved]
  - Protein urine present [Not Recovered/Not Resolved]
  - Computerised tomogram abdomen abnormal [Not Recovered/Not Resolved]
  - Hypophagia [Recovered/Resolved]
  - Glomerular filtration rate decreased [Not Recovered/Not Resolved]
  - Diverticulum intestinal [Recovered/Resolved]
  - Dysuria [Recovered/Resolved]
  - Vomiting [Recovered/Resolved]
  - Oropharyngeal pain [Recovered/Resolved]
  - Red blood cells urine positive [Not Recovered/Not Resolved]
  - Monocyte percentage increased [Not Recovered/Not Resolved]
  - Monocyte count increased [Recovered/Resolved]
  - Haemoglobin decreased [Not Recovered/Not Resolved]
  - Blood calcium decreased [Not Recovered/Not Resolved]
  - Oxygen saturation decreased [Not Recovered/Not Resolved]
  - Calcium ionised decreased [Not Recovered/Not Resolved]
  - Blood osmolarity increased [Recovering/Resolving]
  - Heart rate decreased [Not Recovered/Not Resolved]
  - Diverticular perforation [Recovered/Resolved]
  - Renal failure [Recovered/Resolved]
  - Abscess intestinal [Recovered/Resolved]
  - Decreased appetite [Recovered/Resolved]
  - Abdominal tenderness [Recovered/Resolved]
  - Large intestine perforation [Recovered/Resolved]
  - Pallor [Recovered/Resolved]
  - Neutrophil percentage increased [Not Recovered/Not Resolved]
  - Eosinophil percentage decreased [Recovered/Resolved]
  - Blood sodium decreased [Recovered/Resolved]
  - Blood bilirubin increased [Not Recovered/Not Resolved]
  - Blood creatinine increased [Recovering/Resolving]
  - Chromaturia [Recovered/Resolved]
  - Abdominal rebound tenderness [Recovered/Resolved]
  - Acute kidney injury [Recovered/Resolved]
  - Heart rate increased [Recovered/Resolved]
  - Urine abnormality [Recovered/Resolved]
  - Weight decreased [Recovered/Resolved]
  - PO2 decreased [Not Recovered/Not Resolved]
  - Blood chloride decreased [Recovered/Resolved]
  - Bilirubin conjugated increased [Not Recovered/Not Resolved]
  - Blood urea increased [Recovering/Resolving]
  - Blood magnesium increased [Not Recovered/Not Resolved]
  - Diverticulitis [Recovered/Resolved]
  - Blood pressure diastolic increased [Recovered/Resolved]
  - Chills [Recovered/Resolved]
  - Bacterial test positive [Not Recovered/Not Resolved]
  - Abdominal discomfort [Recovered/Resolved]
  - Renal impairment [Recovered/Resolved]
  - Abdominal pain lower [Recovered/Resolved]
  - Gastric cyst [Recovered/Resolved]
  - Influenza [Recovered/Resolved]
  - Nausea [Recovered/Resolved]
  - Diarrhoea [Recovered/Resolved]
  - Abdominal pain upper [Recovered/Resolved]
  - Renal cyst [Recovered/Resolved]
  - White blood cells urine positive [Not Recovered/Not Resolved]
  - Pyrexia [Recovered/Resolved]
  - Dehydration [Recovered/Resolved]
  - Lymphocyte percentage decreased [Not Recovered/Not Resolved]
  - Neutrophil count increased [Recovered/Resolved]
  - Red blood cell count decreased [Not Recovered/Not Resolved]
  - Blood phosphorus decreased [Not Recovered/Not Resolved]
  - Blood lactic acid increased [Not Recovered/Not Resolved]
  - Blood chloride increased [Not Recovered/Not Resolved]
  - Fatigue [Recovered/Resolved]

NARRATIVE: CASE EVENT DATE: 2018
